FAERS Safety Report 7867551-9 (Version None)
Quarter: 2011Q4

REPORT INFORMATION
  Report Type: 
  Country: None (occurrence: None)
  Receive Date: 20111028
  Receipt Date: 20111020
  Transmission Date: 20120403
  Serious: Yes (Hospitalization)
  Sender: FDA-Public Use
  Company Number: PHHY2011GR93167

PATIENT
  Sex: Female

DRUGS (2)
  1. RED BLOOD CELLS [Concomitant]
     Indication: ANAEMIA
     Dosage: ONE UNIT
     Route: 065
     Dates: start: 20111020
  2. EVEROLIMUS [Suspect]
     Indication: METASTATIC RENAL CELL CARCINOMA
     Dosage: 10 MG, UNK
     Route: 048
     Dates: start: 20110412, end: 20111019

REACTIONS (5)
  - METABOLIC ACIDOSIS [None]
  - INFECTION [None]
  - LETHARGY [None]
  - HYPOXIA [None]
  - DEHYDRATION [None]
